FAERS Safety Report 22929762 (Version 5)
Quarter: 2024Q1

REPORT INFORMATION
  Report Type: Spontaneous
  Country: US (occurrence: US)
  Receive Date: 20230911
  Receipt Date: 20240207
  Transmission Date: 20240410
  Serious: No
  Sender: FDA-Public Use
  Company Number: US-PHARMING-PHAUS2023000651

PATIENT

DRUGS (3)
  1. RUCONEST [Suspect]
     Active Substance: CONESTAT ALFA
     Indication: Hereditary angioedema
     Dosage: 2100 IU, ONCE WEEKLY AND PRN
     Route: 042
     Dates: start: 202303
  2. RUCONEST [Suspect]
     Active Substance: CONESTAT ALFA
     Dosage: 2600 IU, EVERY OTHER WEEK AND AS NEEDED
     Route: 042
     Dates: start: 20230316
  3. RUCONEST [Suspect]
     Active Substance: CONESTAT ALFA
     Dosage: 2600 IU, ONCE WEEKLY AND PRN
     Route: 042
     Dates: start: 202303

REACTIONS (3)
  - Weight increased [Unknown]
  - Underdose [Unknown]
  - Intentional product use issue [Unknown]
